FAERS Safety Report 16536953 (Version 1)
Quarter: 2019Q3

REPORT INFORMATION
  Report Type: Spontaneous
  Country: IT (occurrence: IT)
  Receive Date: 20190707
  Receipt Date: 20190707
  Transmission Date: 20191004
  Serious: Yes (Hospitalization, Other)
  Sender: FDA-Public Use
  Company Number: PHHY2019IT150267

PATIENT
  Age: 46 Year
  Sex: Male

DRUGS (4)
  1. VANCOMYCIN [Concomitant]
     Active Substance: VANCOMYCIN
     Indication: ANTIBIOTIC THERAPY
     Dosage: 125 MG, QID
     Route: 065
  2. OXALIPLATIN. [Suspect]
     Active Substance: OXALIPLATIN
     Indication: ADENOCARCINOMA OF COLON
     Dosage: 130MG/MQ, QW3 ON DAY 1, 8 CYCLES
     Route: 065
     Dates: start: 201709
  3. CAPECITABINE. [Suspect]
     Active Substance: CAPECITABINE
     Indication: ADENOCARCINOMA OF COLON
     Dosage: 2000 MG, QD (EVERY 3 WEEKS, 8 CYCLES)
     Route: 065
     Dates: start: 201709
  4. CAPECITABINE. [Suspect]
     Active Substance: CAPECITABINE
     Dosage: 1000 MG, QD (EVERY 3 WEEKS, 8 CYCLES)
     Route: 065
     Dates: start: 201709

REACTIONS (14)
  - Diarrhoea [Recovered/Resolved]
  - Leukopenia [Recovered/Resolved]
  - Thrombocytopenia [Recovered/Resolved]
  - Hypoalbuminaemia [Recovered/Resolved]
  - Rectal haemorrhage [Recovered/Resolved]
  - Anaemia [Recovered/Resolved]
  - Pyrexia [Recovered/Resolved]
  - Oedema peripheral [Recovered/Resolved]
  - Stomatitis [Recovered/Resolved]
  - Dysphagia [Recovered/Resolved]
  - Hepatic failure [Recovered/Resolved]
  - Hyperbilirubinaemia [Recovered/Resolved]
  - Neutropenia [Recovered/Resolved]
  - International normalised ratio increased [Recovered/Resolved]
